FAERS Safety Report 4971254-8 (Version None)
Quarter: 2006Q2

REPORT INFORMATION
  Report Type: 
  Country: None (occurrence: None)
  Receive Date: 20060413
  Receipt Date: 20051013
  Transmission Date: 20061013
  Serious: Yes (Hospitalization)
  Sender: FDA-Public Use
  Company Number: PR-MERCK-0510USA07411

PATIENT
  Age: 55 Year
  Sex: Female
  Weight: 61 kg

DRUGS (21)
  1. VIOXX [Suspect]
     Indication: INTERVERTEBRAL DISC PROTRUSION
     Route: 048
     Dates: start: 19990101, end: 20040101
  2. VIOXX [Suspect]
     Route: 048
     Dates: start: 20010420
  3. NEURONTIN [Concomitant]
     Indication: CONVULSION
     Route: 065
     Dates: start: 20000803
  4. PREMARIN [Concomitant]
     Indication: MENOPAUSE
     Route: 065
     Dates: start: 20000515, end: 20020913
  5. FOSAMAX [Concomitant]
     Indication: OSTEOPOROSIS
     Route: 065
     Dates: start: 20010131, end: 20010429
  6. LOPID [Concomitant]
     Indication: BLOOD TRIGLYCERIDES INCREASED
     Route: 065
     Dates: start: 20010313, end: 20021223
  7. VALIUM [Concomitant]
     Indication: ANXIETY
     Route: 065
     Dates: start: 20010313
  8. VALIUM [Concomitant]
     Indication: NERVOUSNESS
     Route: 065
     Dates: start: 20010313
  9. CAPOTEN [Concomitant]
     Indication: HYPERTENSION
     Route: 065
     Dates: start: 20020311, end: 20030624
  10. CAPOTEN [Concomitant]
     Indication: CARDIOMEGALY
     Route: 065
     Dates: start: 20020311, end: 20030624
  11. KLONOPIN [Concomitant]
     Indication: ANXIETY
     Route: 065
     Dates: start: 20000518, end: 20030401
  12. TEMAZEPAM [Concomitant]
     Indication: INSOMNIA
     Route: 065
     Dates: start: 20000415, end: 20030401
  13. ZOLOFT [Concomitant]
     Indication: DEPRESSION
     Route: 065
     Dates: start: 20021107, end: 20030203
  14. DESYREL [Concomitant]
     Indication: DEPRESSION
     Route: 065
     Dates: start: 20001110, end: 20010628
  15. FIORICET TABLETS [Concomitant]
     Indication: PAIN
     Route: 065
     Dates: start: 20020211
  16. FIORICET TABLETS [Concomitant]
     Indication: MIGRAINE
     Route: 065
     Dates: start: 20020211
  17. PAXIL [Concomitant]
     Indication: DEPRESSION
     Route: 065
     Dates: start: 20020513
  18. LIPITOR [Concomitant]
     Indication: BLOOD CHOLESTEROL INCREASED
     Route: 065
     Dates: start: 20020729, end: 20021223
  19. PLAVIX [Concomitant]
     Indication: MYOCARDIAL INFARCTION
     Route: 065
     Dates: start: 20040124
  20. PLAVIX [Concomitant]
     Indication: CHEST PAIN
     Route: 065
     Dates: start: 20040124
  21. XANAX [Concomitant]
     Indication: DEPRESSION
     Route: 065
     Dates: start: 20000101, end: 20040101

REACTIONS (13)
  - ACTIVITIES OF DAILY LIVING IMPAIRED [None]
  - ACUTE CORONARY SYNDROME [None]
  - AMNESIA [None]
  - BURSITIS [None]
  - DEPRESSION [None]
  - EMOTIONAL DISTRESS [None]
  - INTERVERTEBRAL DISC DEGENERATION [None]
  - LORDOSIS [None]
  - MYOCARDIAL INFARCTION [None]
  - OSTEOARTHRITIS [None]
  - ROTATOR CUFF SYNDROME [None]
  - SCIATICA [None]
  - SPINAL OSTEOARTHRITIS [None]
